FAERS Safety Report 24385349 (Version 1)
Quarter: 2024Q4

REPORT INFORMATION
  Report Type: Spontaneous
  Country: US (occurrence: US)
  Receive Date: 20241001
  Receipt Date: 20241001
  Transmission Date: 20250114
  Serious: No
  Sender: SANOFI AVENTIS
  Company Number: US-SA-2024SA280260

PATIENT
  Age: 3 Year
  Sex: Female
  Weight: 16.78 kg

DRUGS (1)
  1. DUPIXENT [Suspect]
     Active Substance: DUPILUMAB
     Indication: Dermatitis atopic
     Dosage: 200 MG 1 DOSE EVERY 1 MONTH
     Route: 058
     Dates: start: 20240202, end: 20240202

REACTIONS (2)
  - Skin discolouration [Recovered/Resolved with Sequelae]
  - Eye pain [Recovered/Resolved with Sequelae]

NARRATIVE: CASE EVENT DATE: 20240101
